FAERS Safety Report 6680878-1 (Version None)
Quarter: 2010Q2

REPORT INFORMATION
  Report Type: 
  Country: None (occurrence: None)
  Receive Date: 20100413
  Receipt Date: 20100413
  Transmission Date: 20101027
  Serious: Yes (Other)
  Sender: FDA-Public Use
  Company Number: None

PATIENT
  Age: 48 Year
  Sex: Female
  Weight: 70.7611 kg

DRUGS (1)
  1. REMICADE [Suspect]
     Indication: SARCOIDOSIS
     Dosage: 400MG EVERY 4 WEEKS IV
     Route: 042
     Dates: start: 20070427, end: 20100225

REACTIONS (1)
  - COLITIS ULCERATIVE [None]
